FAERS Safety Report 12597376 (Version 1)
Quarter: 2016Q3

REPORT INFORMATION
  Report Type: Report from Study
  Country: BR (occurrence: BR)
  Receive Date: 20160726
  Receipt Date: 20160726
  Transmission Date: 20161109
  Serious: Yes (Hospitalization)
  Sender: FDA-Public Use
  Company Number: PHHY2016BR101311

PATIENT
  Sex: Female
  Weight: 72 kg

DRUGS (1)
  1. EXJADE [Suspect]
     Active Substance: DEFERASIROX
     Indication: SICKLE CELL ANAEMIA
     Dosage: 1500 MG, UNK
     Route: 065
     Dates: start: 2013

REACTIONS (7)
  - Hypokinesia [Unknown]
  - Weight increased [Unknown]
  - Abasia [Unknown]
  - Fall [Unknown]
  - Pain in extremity [Unknown]
  - Hypotonia [Unknown]
  - Muscle atrophy [Unknown]
